FAERS Safety Report 7809591-1 (Version None)
Quarter: 2011Q4

REPORT INFORMATION
  Report Type: 
  Country: None (occurrence: None)
  Receive Date: 20111012
  Receipt Date: 20111004
  Transmission Date: 20120403
  Serious: Yes (Hospitalization, Other)
  Sender: FDA-Public Use
  Company Number: US-MERCK-1110USA00568

PATIENT
  Age: 70 Year
  Sex: Female

DRUGS (20)
  1. BENICAR [Concomitant]
     Route: 065
  2. NEXIUM [Concomitant]
     Route: 065
  3. ALBUTEROL SULFATE [Concomitant]
     Route: 065
  4. OXYGEN [Concomitant]
     Dosage: 2 L 24 HOURS A DAY, SEVEN DAYS A WEEK
     Route: 065
  5. CALTRATE + D [Concomitant]
     Route: 065
  6. OXYGEN [Concomitant]
     Route: 065
  7. CITALOPRAM [Concomitant]
     Route: 065
  8. OMEGA-3 MARINE TRIGLYCERIDES [Concomitant]
     Route: 065
  9. AGGRENOX [Concomitant]
     Route: 065
  10. COMBIVENT [Concomitant]
     Route: 065
  11. SPIRIVA [Concomitant]
     Route: 065
  12. FOSAMAX [Suspect]
     Route: 048
  13. PREDNISONE [Concomitant]
     Route: 065
  14. HYDROCODONE [Concomitant]
     Route: 065
  15. LIPITOR [Concomitant]
     Route: 065
  16. LYRICA [Concomitant]
     Route: 065
  17. TRAZODONE HYDROCHLORIDE [Concomitant]
     Route: 065
  18. SYMBICORT [Concomitant]
     Route: 065
  19. VITAMINS (UNSPECIFIED) [Concomitant]
     Route: 065
  20. FORTEO [Suspect]
     Indication: OSTEOPOROSIS
     Route: 065
     Dates: start: 20030101

REACTIONS (5)
  - COMPLICATION OF DEVICE INSERTION [None]
  - SPINAL FRACTURE [None]
  - SPINAL COMPRESSION FRACTURE [None]
  - PNEUMONIA [None]
  - HIP FRACTURE [None]
